FAERS Safety Report 17083523 (Version 1)
Quarter: 2019Q4

REPORT INFORMATION
  Report Type: Report from Study
  Country: US (occurrence: US)
  Receive Date: 20191127
  Receipt Date: 20191127
  Transmission Date: 20200122
  Serious: Yes (Hospitalization, Other)
  Sender: FDA-Public Use
  Company Number: US-B.I. PHARMACEUTICALS,INC./RIDGEFIELD-2017-BI-039206

PATIENT
  Age: 73 Year
  Sex: Male

DRUGS (6)
  1. OFEV [Suspect]
     Active Substance: NINTEDANIB
     Indication: IDIOPATHIC PULMONARY FIBROSIS
     Route: 048
     Dates: start: 20170622
  2. OFEV [Suspect]
     Active Substance: NINTEDANIB
     Route: 048
     Dates: start: 20170705
  3. OFEV [Suspect]
     Active Substance: NINTEDANIB
     Route: 048
     Dates: start: 20171205
  4. PLAVIX [Concomitant]
     Active Substance: CLOPIDOGREL BISULFATE
     Indication: PRODUCT USED FOR UNKNOWN INDICATION
     Route: 065
  5. OFEV [Suspect]
     Active Substance: NINTEDANIB
     Route: 048
     Dates: start: 20170627
  6. OFEV [Suspect]
     Active Substance: NINTEDANIB
     Route: 048

REACTIONS (22)
  - Cardiac pacemaker insertion [Recovered/Resolved]
  - Productive cough [Not Recovered/Not Resolved]
  - Constipation [Unknown]
  - Increased tendency to bruise [Unknown]
  - Haemorrhagic diathesis [Unknown]
  - Vomiting [Unknown]
  - Back pain [Unknown]
  - Dyspnoea exertional [Not Recovered/Not Resolved]
  - Vomiting [Recovered/Resolved]
  - Muscle spasms [Recovered/Resolved with Sequelae]
  - Fatigue [Unknown]
  - Cough [Unknown]
  - Cardiac disorder [Unknown]
  - Cardiac failure congestive [Unknown]
  - Nausea [Recovered/Resolved with Sequelae]
  - Arthralgia [Recovered/Resolved with Sequelae]
  - Nausea [Unknown]
  - Nasopharyngitis [Unknown]
  - Dyspnoea [Unknown]
  - Arthralgia [Unknown]
  - Angiogram abnormal [Unknown]
  - Rhinorrhoea [Unknown]

NARRATIVE: CASE EVENT DATE: 20170814
